FAERS Safety Report 10553108 (Version 1)
Quarter: 2014Q4

REPORT INFORMATION
  Report Type: Spontaneous
  Country: BE (occurrence: BE)
  Receive Date: 20141030
  Receipt Date: 20141030
  Transmission Date: 20150529
  Serious: Yes (Other)
  Sender: FDA-Public Use
  Company Number: PHHY2014BE138972

PATIENT
  Sex: Female

DRUGS (1)
  1. QUETIAPINE SANDOZ [Suspect]
     Active Substance: QUETIAPINE
     Indication: PSYCHOTIC DISORDER
     Dosage: 25 MG, BID
     Route: 048

REACTIONS (1)
  - Paresis [Unknown]

NARRATIVE: CASE EVENT DATE: 20140702
